FAERS Safety Report 20512963 (Version 1)
Quarter: 2022Q1

REPORT INFORMATION
  Report Type: Report from Study
  Country: HK (occurrence: HK)
  Receive Date: 20220224
  Receipt Date: 20220224
  Transmission Date: 20220423
  Serious: Yes (Other)
  Sender: FDA-Public Use
  Company Number: HK-Accord-254825

PATIENT
  Age: 12 Year
  Sex: Male

DRUGS (2)
  1. CARBOPLATIN [Suspect]
     Active Substance: CARBOPLATIN
     Indication: Intracranial germ cell tumour
  2. ETOPOSIDE [Concomitant]
     Active Substance: ETOPOSIDE
     Indication: Intracranial germ cell tumour

REACTIONS (1)
  - Renal salt-wasting syndrome [Unknown]
